FAERS Safety Report 14174178 (Version 1)
Quarter: 2017Q4

REPORT INFORMATION
  Report Type: Spontaneous
  Country: US (occurrence: None)
  Receive Date: 20171109
  Receipt Date: 20171109
  Transmission Date: 20180321
  Serious: Yes (Other)
  Sender: FDA-Public Use
  Company Number: None

PATIENT
  Sex: Female
  Weight: 86.64 kg

DRUGS (6)
  1. PHENTERMINE 37.5MG GENERIC [Suspect]
     Active Substance: PHENTERMINE HYDROCHLORIDE
     Indication: OBESITY
     Dates: start: 201404, end: 20170803
  2. CACL [Concomitant]
  3. SERTRALINE [Concomitant]
     Active Substance: SERTRALINE HYDROCHLORIDE
  4. TOPIRAMATE 25 MG GENERIC [Suspect]
     Active Substance: TOPIRAMATE
     Dates: start: 2014, end: 20170803
  5. MULTIVITAMIN [Concomitant]
     Active Substance: VITAMINS
  6. NEXIUM [Concomitant]
     Active Substance: ESOMEPRAZOLE MAGNESIUM

REACTIONS (4)
  - Vision blurred [None]
  - Palpitations [None]
  - Tremor [None]
  - Irritability [None]
